FAERS Safety Report 8974114 (Version 1)
Quarter: 2012Q4

REPORT INFORMATION
  Report Type: Spontaneous
  Country: US (occurrence: None)
  Receive Date: 20121217
  Receipt Date: 20121217
  Transmission Date: 20130627
  Serious: Yes (Hospitalization)
  Sender: FDA-Public Use
  Company Number: None

PATIENT
  Age: 74 Year
  Sex: Female
  Weight: 53.5 kg

DRUGS (7)
  1. DECITABINE [Suspect]
     Route: 058
  2. DECITABINE [Suspect]
  3. FLUDROCORTISONE [Concomitant]
  4. MIDORINE [Concomitant]
  5. XANAX [Concomitant]
  6. LIPITOR [Concomitant]
  7. SYNTHROID [Concomitant]

REACTIONS (3)
  - Hypertension [None]
  - Aneurysm [None]
  - White blood cell count decreased [None]
